FAERS Safety Report 20650844 (Version 1)
Quarter: 2022Q1

REPORT INFORMATION
  Report Type: Spontaneous
  Country: CN (occurrence: CN)
  Receive Date: 20220329
  Receipt Date: 20220329
  Transmission Date: 20220423
  Serious: Yes (Hospitalization)
  Sender: FDA-Public Use
  Company Number: CN-GILEAD-2022-0575294

PATIENT
  Age: 66 Year
  Sex: Female
  Weight: 44 kg

DRUGS (6)
  1. VEMLIDY [Suspect]
     Active Substance: TENOFOVIR ALAFENAMIDE FUMARATE
     Indication: Hepatitis B
     Dosage: 25 MG, QD
     Route: 048
     Dates: start: 20220128, end: 20220313
  2. VEMLIDY [Suspect]
     Active Substance: TENOFOVIR ALAFENAMIDE FUMARATE
     Indication: Hepatic cirrhosis
  3. FLUVASTATIN SODIUM [Suspect]
     Active Substance: FLUVASTATIN SODIUM
     Indication: Diabetes mellitus
     Dosage: 80 MG, QD
     Route: 048
     Dates: start: 20220128, end: 20220308
  4. FLUVASTATIN SODIUM [Suspect]
     Active Substance: FLUVASTATIN SODIUM
     Indication: Dyslipidaemia
  5. METFORMIN HYDROCHLORIDE\VILDAGLIPTIN [Concomitant]
     Active Substance: METFORMIN HYDROCHLORIDE\VILDAGLIPTIN
     Indication: Diabetes mellitus
     Dosage: 1 DOSAGE FORM, BID
     Route: 048
     Dates: start: 20220128, end: 20220206
  6. CALCIUM DOBESILATE [Concomitant]
     Active Substance: CALCIUM DOBESILATE
     Indication: Haemophagocytic lymphohistiocytosis
     Dosage: 0.5 G, BID
     Route: 048
     Dates: start: 20220128, end: 20220308

REACTIONS (2)
  - Pyrexia [Recovering/Resolving]
  - Rash [Recovering/Resolving]

NARRATIVE: CASE EVENT DATE: 20220305
